FAERS Safety Report 6942126-4 (Version None)
Quarter: 2010Q3

REPORT INFORMATION
  Report Type: 
  Country: None (occurrence: None)
  Receive Date: 20100817
  Receipt Date: 20100416
  Transmission Date: 20110219
  Serious: Yes (Other)
  Sender: FDA-Public Use
  Company Number: 20108633

PATIENT
  Sex: Male

DRUGS (2)
  1. LIORESAL [Suspect]
     Indication: MUSCLE SPASTICITY
     Dosage: 359 MCG, DAILY, INTRATHECAL
     Route: 037
  2. PRIALT [Concomitant]

REACTIONS (3)
  - BRADYCARDIA [None]
  - OVERDOSE [None]
  - THERAPY REGIMEN CHANGED [None]
